FAERS Safety Report 12863607 (Version 1)
Quarter: 2016Q4

REPORT INFORMATION
  Report Type: Report from Study
  Country: US (occurrence: US)
  Receive Date: 20161019
  Receipt Date: 20161019
  Transmission Date: 20170207
  Serious: Yes (Other)
  Sender: FDA-Public Use
  Company Number: US-SAOL THERAPEUTICS-2016SAO00835

PATIENT
  Age: 49 Year
  Sex: Male

DRUGS (25)
  1. BUPIVACAINE. [Suspect]
     Active Substance: BUPIVACAINE
     Dosage: 12.001 UNK, UNK
     Dates: start: 20150128
  2. HYDROMORPHONE [Suspect]
     Active Substance: HYDROMORPHONE
     Route: 037
  3. COMPOUNDED BACLOFEN [Suspect]
     Active Substance: BACLOFEN
     Dosage: 200.02 ?G, \DAY
     Route: 037
  4. COMPOUNDED BACLOFEN [Suspect]
     Active Substance: BACLOFEN
     Dosage: 160.02 ?G, UNK
     Route: 037
     Dates: start: 20150128
  5. COMPOUNDED BACLOFEN [Suspect]
     Active Substance: BACLOFEN
     Dosage: 263.97 ?G, \DAY
     Dates: start: 20141230
  6. CLONIDINE. [Suspect]
     Active Substance: CLONIDINE
     Dosage: 125.17 ?G, UNK
     Route: 037
     Dates: start: 20140826
  7. CLONIDINE. [Suspect]
     Active Substance: CLONIDINE
     Dosage: 100.01 ?G, \DAY
     Route: 037
     Dates: start: 20140814
  8. FENTANYL. [Suspect]
     Active Substance: FENTANYL
     Dosage: 50.01 ?G, \DAY
     Dates: start: 20140814
  9. FENTANYL. [Suspect]
     Active Substance: FENTANYL
     Dosage: 69.59 ?G, UNK
     Route: 037
     Dates: start: 20140826
  10. FENTANYL. [Suspect]
     Active Substance: FENTANYL
     Dosage: 125.01 ?G, \DAY
     Route: 037
  11. FENTANYL. [Suspect]
     Active Substance: FENTANYL
     Dosage: 76.99 ?G, \DAY
     Route: 037
     Dates: start: 20141117
  12. BUPIVACAINE. [Suspect]
     Active Substance: BUPIVACAINE
     Dosage: 19.798 UNK, UNK
     Dates: start: 20141230
  13. CLONIDINE. [Suspect]
     Active Substance: CLONIDINE
     Dosage: 160.02 ?G, UNK
     Route: 037
     Dates: start: 20150128
  14. FENTANYL. [Suspect]
     Active Substance: FENTANYL
     Dosage: 65.99 ?G, \DAY
     Dates: start: 20141230
  15. BUPIVACAINE. [Suspect]
     Active Substance: BUPIVACAINE
     Dosage: 15.002 MG, \DAY
     Route: 037
     Dates: start: 20140814
  16. BUPIVACAINE. [Suspect]
     Active Substance: BUPIVACAINE
     Dosage: 18.776 ?G, \DAY
     Route: 037
     Dates: start: 20140826
  17. BUPIVACAINE. [Suspect]
     Active Substance: BUPIVACAINE
     Dosage: 23.098 MG, \DAY
     Route: 037
     Dates: start: 20141117
  18. COMPOUNDED BACLOFEN [Suspect]
     Active Substance: BACLOFEN
     Dosage: 250.35 ?G, \DAY
     Dates: start: 20140826
  19. FENTANYL. [Suspect]
     Active Substance: FENTANYL
     Dosage: 76.99 ?G, UNK
     Dates: start: 20141117
  20. COMPOUNDED BACLOFEN [Suspect]
     Active Substance: BACLOFEN
     Dosage: 307.97 ?G, \DAY
     Dates: start: 20141117
  21. COMPOUNDED BACLOFEN [Suspect]
     Active Substance: BACLOFEN
     Dosage: 250.03 ?G, \DAY
     Route: 037
     Dates: start: 20140814
  22. FENTANYL. [Suspect]
     Active Substance: FENTANYL
     Dosage: 100.1 ?G, UNK
     Route: 037
     Dates: start: 20150128
  23. CLONIDINE. [Suspect]
     Active Substance: CLONIDINE
     Dosage: 200.02 ?G, \DAY
     Route: 037
     Dates: start: 20150128
  24. CLONIDINE. [Suspect]
     Active Substance: CLONIDINE
     Dosage: 131.99 ?G, \DAY
     Route: 037
     Dates: start: 20141230
  25. CLONIDINE. [Suspect]
     Active Substance: CLONIDINE
     Dosage: 153.98 ?G, \DAY
     Route: 037
     Dates: start: 20141117

REACTIONS (12)
  - Nuclear magnetic resonance imaging abnormal [Unknown]
  - Dizziness [Recovered/Resolved]
  - Off label use [Unknown]
  - Medical device site pain [Recovered/Resolved]
  - Chills [Recovered/Resolved]
  - Balance disorder [Recovered/Resolved]
  - Infusion site mass [Unknown]
  - Muscular weakness [Unknown]
  - Hypoaesthesia [Recovered/Resolved]
  - Confusional state [Recovered/Resolved]
  - Anxiety [Recovered/Resolved]
  - Intervertebral disc protrusion [Unknown]

NARRATIVE: CASE EVENT DATE: 20140826
